FAERS Safety Report 12290212 (Version 1)
Quarter: 2016Q2

REPORT INFORMATION
  Report Type: Spontaneous
  Country: US (occurrence: US)
  Receive Date: 20160421
  Receipt Date: 20160421
  Transmission Date: 20160815
  Serious: No
  Sender: FDA-Public Use
  Company Number: US-DRREDDYS-USA/USA/16/0068232

PATIENT
  Age: 16 Year
  Sex: Male
  Weight: 54.43 kg

DRUGS (1)
  1. ZENATANE [Suspect]
     Active Substance: ISOTRETINOIN
     Indication: ACNE
     Route: 048
     Dates: start: 20160106

REACTIONS (4)
  - Pyrexia [Not Recovered/Not Resolved]
  - Malaise [Unknown]
  - Cough [Unknown]
  - Eye pain [Unknown]

NARRATIVE: CASE EVENT DATE: 20160124
